FAERS Safety Report 9511043 (Version 1)
Quarter: 2013Q1

REPORT INFORMATION
  Report Type: Spontaneous
  Country: US (occurrence: None)
  Receive Date: 20130305
  Receipt Date: 20130305
  Transmission Date: 20140127
  Serious: Yes (Hospitalization)
  Sender: FDA-Public Use
  Company Number: 163-21880-12021230

PATIENT
  Age: 67 Year
  Sex: Male
  Weight: 56.25 kg

DRUGS (3)
  1. REVLIMID (LENALIDOMIDE) (CAPSULES) [Suspect]
     Indication: PLASMA CELL MYELOMA
     Dosage: DAILY X 21 DAYS
     Route: 048
     Dates: start: 20111210
  2. DEXAMETHASONE [Concomitant]
  3. POTASSIUM [Concomitant]

REACTIONS (1)
  - Pneumonia [None]
